FAERS Safety Report 15604931 (Version 5)
Quarter: 2018Q4

REPORT INFORMATION
  Report Type: Report from Study
  Country: None (occurrence: CA)
  Receive Date: 20181111
  Receipt Date: 20181214
  Transmission Date: 20190205
  Serious: Yes (Hospitalization, Other)
  Sender: FDA-Public Use
  Company Number: CA-ABBVIE-18K-028-2549330-00

PATIENT
  Age: 64 Year
  Sex: Male

DRUGS (1)
  1. HUMIRA [Suspect]
     Active Substance: ADALIMUMAB
     Indication: HIDRADENITIS
     Route: 058
     Dates: start: 20170609

REACTIONS (7)
  - Myocardial infarction [Not Recovered/Not Resolved]
  - Arterial occlusive disease [Not Recovered/Not Resolved]
  - Disorientation [Unknown]
  - Infective pericardial effusion [Unknown]
  - Confusional state [Unknown]
  - Coma [Recovered/Resolved]
  - Apparent death [Unknown]

NARRATIVE: CASE EVENT DATE: 2018
